FAERS Safety Report 24217352 (Version 1)
Quarter: 2024Q3

REPORT INFORMATION
  Report Type: Spontaneous
  Country: US (occurrence: US)
  Receive Date: 20240816
  Receipt Date: 20240816
  Transmission Date: 20241016
  Serious: Yes (Death, Other)
  Sender: AMGEN
  Company Number: US-AMGEN-USASP2024161538

PATIENT

DRUGS (5)
  1. PREDNISONE [Suspect]
     Active Substance: PREDNISONE
     Indication: Central nervous system lymphoma
     Dosage: UNK
     Route: 065
  2. RITUXIMAB [Concomitant]
     Active Substance: RITUXIMAB
  3. METHOTREXATE [Concomitant]
     Active Substance: METHOTREXATE
  4. CARMUSTINE [Concomitant]
     Active Substance: CARMUSTINE
  5. ETOPOSIDE [Concomitant]
     Active Substance: ETOPOSIDE

REACTIONS (3)
  - Death [Fatal]
  - Central nervous system lymphoma [Unknown]
  - Therapy partial responder [Unknown]
